FAERS Safety Report 6235009-9 (Version None)
Quarter: 2009Q2

REPORT INFORMATION
  Report Type: 
  Country: None (occurrence: None)
  Receive Date: 20090618
  Receipt Date: 20090605
  Transmission Date: 20091009
  Serious: No
  Sender: FDA-Public Use
  Company Number: JP-ELI_LILLY_AND_COMPANY-JP200906000911

PATIENT
  Age: 44 Year
  Sex: Female

DRUGS (6)
  1. OLANZAPINE [Suspect]
     Dosage: 10 MG, DAILY (1/D)
     Route: 048
  2. OLANZAPINE [Suspect]
     Dosage: 17.5 MG, DAILY (1/D)
     Route: 048
  3. DOGMATYL [Concomitant]
     Dosage: 50 MG, DAILY (1/D)
     Route: 048
  4. DEPAS [Concomitant]
     Dosage: 1 MG, DAILY (1/D)
     Route: 048
  5. DORAL [Concomitant]
     Dosage: 0.75 MG, DAILY (1/D)
     Route: 048
  6. RESLIN [Concomitant]
     Dosage: 50 MG, DAILY (1/D)
     Route: 048

REACTIONS (1)
  - POLYMENORRHOEA [None]
